FAERS Safety Report 16260808 (Version 4)
Quarter: 2019Q2

REPORT INFORMATION
  Report Type: Report from Study
  Country: None (occurrence: US)
  Receive Date: 20190501
  Receipt Date: 20190606
  Transmission Date: 20190711
  Serious: Yes (Other)
  Sender: FDA-Public Use
  Company Number: US-ABBVIE-19P-163-2759362-00

PATIENT
  Age: 29 Year
  Sex: Female

DRUGS (1)
  1. ORILISSA [Suspect]
     Active Substance: ELAGOLIX SODIUM
     Indication: PRODUCT USED FOR UNKNOWN INDICATION
     Route: 048
     Dates: start: 201903

REACTIONS (11)
  - Migraine [Recovered/Resolved]
  - Taste disorder [Recovered/Resolved]
  - Drug ineffective [Not Recovered/Not Resolved]
  - Balance disorder [Recovered/Resolved]
  - Seizure [Recovered/Resolved]
  - Hormone level abnormal [Recovering/Resolving]
  - Parosmia [Recovered/Resolved]
  - Ovulation pain [Not Recovered/Not Resolved]
  - Acne [Not Recovered/Not Resolved]
  - Rash [Not Recovered/Not Resolved]
  - Menstruation delayed [Not Recovered/Not Resolved]

NARRATIVE: CASE EVENT DATE: 201903
